FAERS Safety Report 5825096-1 (Version None)
Quarter: 2008Q3

REPORT INFORMATION
  Report Type: 
  Country: None (occurrence: None)
  Receive Date: 20080729
  Receipt Date: 20080509
  Transmission Date: 20090109
  Serious: Yes (Death, Other)
  Sender: FDA-Public Use
  Company Number: JP-WYE-H05224408

PATIENT
  Age: 74 Year
  Sex: Male

DRUGS (18)
  1. ANCARON [Suspect]
     Route: 048
     Dates: start: 20080224, end: 20080228
  2. ANCARON [Suspect]
     Dosage: UNSPECIFIED
     Route: 048
     Dates: start: 20080229, end: 20080307
  3. ANCARON [Suspect]
     Route: 048
     Dates: start: 20080308, end: 20080402
  4. BUFFERIN [Concomitant]
     Indication: CORONARY ANGIOPLASTY
     Dosage: 162 MG ONCE FOLLOWED BY UNSPECIFIED DAILY DOSE
     Dates: start: 20080227
  5. HEPARIN SODIUM [Concomitant]
     Dates: start: 20080227
  6. ALDACTONE [Concomitant]
     Dosage: UNSPECIFIED
     Dates: start: 20080303
  7. SUCRALFATE [Concomitant]
     Dosage: UNSPECIFIED
     Dates: start: 20080303
  8. NICORANDIL [Concomitant]
     Dosage: UNSPECIFIED
     Dates: start: 20080228
  9. LASIX [Concomitant]
     Dosage: UNSPECIFIED
  10. TRANDOLAPRIL [Concomitant]
     Dosage: UNSPECIFIED
     Dates: start: 20080228
  11. ZOLPIDEM TARTRATE [Concomitant]
     Dosage: UNSPECIFIED
     Dates: start: 20080228
  12. CLOSTRIDIUM BUTYRICUM [Concomitant]
     Dosage: UNSPECIFIED
     Dates: start: 20080228
  13. GENTAMICIN SULFATE [Concomitant]
     Indication: PNEUMONIA BACTERIAL
     Dosage: UNSPECIFIED
     Dates: start: 20080328
  14. MEROPEN [Concomitant]
     Indication: PNEUMONIA BACTERIAL
     Dosage: UNSPECIFIED
     Dates: start: 20080329
  15. PLAVIX [Suspect]
     Indication: IN-STENT CORONARY ARTERY RESTENOSIS
     Dosage: 300 MG FOLLOWED BY 75 MG DAILY
     Route: 048
     Dates: start: 20080227
  16. PLAVIX [Suspect]
     Indication: CORONARY ANGIOPLASTY
  17. PLAVIX [Suspect]
     Indication: ACUTE MYOCARDIAL INFARCTION
  18. PLETAL [Concomitant]
     Dates: start: 20080310

REACTIONS (11)
  - ACUTE MYOCARDIAL INFARCTION [None]
  - CARDIAC ARREST [None]
  - HERPES ZOSTER [None]
  - IN-STENT CORONARY ARTERY RESTENOSIS [None]
  - INTERSTITIAL LUNG DISEASE [None]
  - LUNG INFECTION PSEUDOMONAL [None]
  - RESPIRATORY ARREST [None]
  - RESPIRATORY FAILURE [None]
  - SERRATIA INFECTION [None]
  - THROMBOSIS IN DEVICE [None]
  - VENTRICULAR TACHYCARDIA [None]
